FAERS Safety Report 11693340 (Version 1)
Quarter: 2015Q4

REPORT INFORMATION
  Report Type: Spontaneous
  Country: US (occurrence: None)
  Receive Date: 20151102
  Receipt Date: 20151102
  Transmission Date: 20160304
  Serious: Yes (Other)
  Sender: FDA-Public Use
  Company Number: None

PATIENT
  Age: 74 Year
  Sex: Female
  Weight: 68.04 kg

DRUGS (1)
  1. COVARYX HS [Suspect]
     Active Substance: ESTROGENS, ESTERIFIED\METHYLTESTOSTERONE
     Indication: HYSTERECTOMY
     Dosage: 1 TABLET, ONCE DAILY
     Dates: start: 20151022, end: 20151029

REACTIONS (5)
  - Libido disorder [None]
  - Anorgasmia [None]
  - Depression [None]
  - Pain in extremity [None]
  - Abdominal discomfort [None]

NARRATIVE: CASE EVENT DATE: 20151022
